FAERS Safety Report 13791153 (Version 1)
Quarter: 2017Q3

REPORT INFORMATION
  Report Type: Report from Study
  Country: US (occurrence: US)
  Receive Date: 20170725
  Receipt Date: 20170725
  Transmission Date: 20171127
  Serious: Yes (Hospitalization)
  Sender: FDA-Public Use
  Company Number: US-BAYER-2017-138050

PATIENT
  Age: 45 Year
  Sex: Female

DRUGS (2)
  1. NEXAVAR [Suspect]
     Active Substance: SORAFENIB
     Indication: HEPATOCELLULAR CARCINOMA
     Dosage: UNK
     Route: 048
     Dates: start: 201706, end: 2017
  2. NEXAVAR [Suspect]
     Active Substance: SORAFENIB
     Indication: HEPATOCELLULAR CARCINOMA
     Dosage: 400 MG, BID (ON AN EMPTY STOMACH AT LEAST 1 HOUR BEFORE OR 2 HOURS AFTER EATING)
     Route: 048
     Dates: start: 20170717

REACTIONS (2)
  - Off label use [None]
  - Hospitalisation [None]

NARRATIVE: CASE EVENT DATE: 201707
